FAERS Safety Report 7811465-7 (Version None)
Quarter: 2011Q4

REPORT INFORMATION
  Report Type: 
  Country: None (occurrence: None)
  Receive Date: 20111013
  Receipt Date: 20111006
  Transmission Date: 20120403
  Serious: Yes (Death)
  Sender: FDA-Public Use
  Company Number: US-UCBSA-042978

PATIENT
  Sex: Male

DRUGS (4)
  1. LORTAB [Suspect]
     Indication: PAIN IN EXTREMITY
  2. NEURONTIN [Suspect]
     Indication: PAIN IN EXTREMITY
  3. TRILEPTAL [Suspect]
     Indication: CONVULSION
  4. MORPHINE [Suspect]
     Dosage: 100 MG/5 ML
     Route: 048

REACTIONS (3)
  - HEAD INJURY [None]
  - COMPLETED SUICIDE [None]
  - GUN SHOT WOUND [None]
